FAERS Safety Report 4570381-7 (Version None)
Quarter: 2005Q1

REPORT INFORMATION
  Report Type: 
  Country: None (occurrence: None)
  Receive Date: 20050126
  Receipt Date: 20050126
  Transmission Date: 20050727
  Serious: No
  Sender: FDA-Public Use
  Company Number: None

PATIENT
  Sex: Female
  Weight: 87.0906 kg

DRUGS (7)
  1. ZETIA [Suspect]
     Indication: DYSLIPIDAEMIA
     Dosage: 10MG PO QHS
     Route: 048
     Dates: start: 20050117
  2. PRAVACHOL [Concomitant]
  3. TOPROL-XL [Concomitant]
  4. FOLIC ACID [Concomitant]
  5. ALTACE [Concomitant]
  6. VIT. B12 [Concomitant]
  7. ASPIRIN [Concomitant]

REACTIONS (1)
  - RASH [None]
